FAERS Safety Report 7190528-6 (Version None)
Quarter: 2010Q4

REPORT INFORMATION
  Report Type: 
  Country: None (occurrence: None)
  Receive Date: 20101223
  Receipt Date: 20101222
  Transmission Date: 20110411
  Serious: Yes (Other)
  Sender: FDA-Public Use
  Company Number: JP-BAXTER-2010BH029585

PATIENT
  Age: 18 Year
  Sex: Female

DRUGS (4)
  1. EXTRANEAL [Suspect]
     Indication: RENAL FAILURE CHRONIC
     Route: 033
  2. DIANEAL [Suspect]
     Indication: RENAL FAILURE CHRONIC
     Route: 033
  3. UNSPECIFIED IMMUNOSUPPRESSIVE [Concomitant]
     Indication: NEPHROTIC SYNDROME
     Route: 065
  4. STEROID PULSE THERAPY [Concomitant]
     Indication: NEPHROTIC SYNDROME
     Route: 065

REACTIONS (1)
  - SCLEROSING ENCAPSULATING PERITONITIS [None]
